FAERS Safety Report 13911989 (Version 1)
Quarter: 2017Q3

REPORT INFORMATION
  Report Type: Spontaneous
  Country: CH (occurrence: CH)
  Receive Date: 20170828
  Receipt Date: 20170828
  Transmission Date: 20171127
  Serious: Yes (Hospitalization)
  Sender: FDA-Public Use
  Company Number: CH-JNJFOC-20170823861

PATIENT
  Age: 74 Year
  Sex: Male

DRUGS (11)
  1. COVERSUM [Concomitant]
     Active Substance: PERINDOPRIL
     Route: 065
  2. PANTOZOL [Concomitant]
     Active Substance: PANTOPRAZOLE SODIUM
     Route: 065
  3. TORASEMID [Concomitant]
     Active Substance: TORSEMIDE
     Route: 065
  4. NEBIVOLOL. [Concomitant]
     Active Substance: NEBIVOLOL
     Route: 065
  5. METFORMIN [Concomitant]
     Active Substance: METFORMIN HYDROCHLORIDE
     Route: 065
  6. ATORVASTATIN [Concomitant]
     Active Substance: ATORVASTATIN
     Route: 065
  7. XARELTO [Suspect]
     Active Substance: RIVAROXABAN
     Indication: ATRIAL FIBRILLATION
     Route: 048
     Dates: start: 2017, end: 20170621
  8. CORDARONE [Suspect]
     Active Substance: AMIODARONE HYDROCHLORIDE
     Indication: ATRIAL FIBRILLATION
     Route: 048
     Dates: start: 2017
  9. ALDACTONE [Concomitant]
     Active Substance: SPIRONOLACTONE
     Route: 065
  10. ASPIRIN CARDIO [Suspect]
     Active Substance: ASPIRIN
     Indication: CORONARY ARTERY DISEASE
     Route: 048
     Dates: start: 2017
  11. XARELTO [Suspect]
     Active Substance: RIVAROXABAN
     Indication: ATRIAL FIBRILLATION
     Route: 048
     Dates: start: 20170630

REACTIONS (1)
  - Hypochromic anaemia [Recovering/Resolving]

NARRATIVE: CASE EVENT DATE: 20170621
